FAERS Safety Report 8071301-3 (Version None)
Quarter: 2012Q1

REPORT INFORMATION
  Report Type: 
  Country: None (occurrence: None)
  Receive Date: 20120125
  Receipt Date: 20120118
  Transmission Date: 20120608
  Serious: Yes (Other)
  Sender: FDA-Public Use
  Company Number: PHHY2012CA005423

PATIENT
  Sex: Female

DRUGS (1)
  1. TRIAMCINOLONE [Suspect]
     Indication: SCIATICA
     Route: 008
     Dates: start: 20120117

REACTIONS (3)
  - ASTHMA [None]
  - PALPITATIONS [None]
  - DRUG INEFFECTIVE [None]
